FAERS Safety Report 9726938 (Version 1)
Quarter: 2013Q4

REPORT INFORMATION
  Report Type: Spontaneous
  Country: US (occurrence: US)
  Receive Date: 20131203
  Receipt Date: 20131203
  Transmission Date: 20140711
  Serious: No
  Sender: FDA-Public Use
  Company Number: US-NOVEN-13US007266

PATIENT
  Age: 50 Year
  Sex: Female

DRUGS (7)
  1. FENTANYL [Suspect]
     Indication: PAIN
     Dosage: 50 MCG/HR, Q 72H
     Route: 062
     Dates: start: 20130623
  2. HYDROCODONE [Concomitant]
     Dosage: UNK
  3. ATENOLOL [Concomitant]
     Dosage: UNK
  4. GLIPIZIDE [Concomitant]
     Indication: PRODUCT USED FOR UNKNOWN INDICATION
     Dosage: UNK
  5. PREMARIN [Concomitant]
     Dosage: UNK
  6. PRAVASTATIN [Concomitant]
     Dosage: UNK
  7. ABILIFY [Concomitant]
     Dosage: UNK

REACTIONS (3)
  - Inadequate analgesia [Not Recovered/Not Resolved]
  - Pruritus [Not Recovered/Not Resolved]
  - Product quality issue [Not Recovered/Not Resolved]
